FAERS Safety Report 24831943 (Version 1)
Quarter: 2025Q1

REPORT INFORMATION
  Report Type: Report from Study
  Country: TR (occurrence: TR)
  Receive Date: 20250110
  Receipt Date: 20250110
  Transmission Date: 20250408
  Serious: Yes (Other)
  Sender: TEVA
  Company Number: TR-TEVA-VS-3285258

PATIENT
  Age: 33 Year
  Sex: Female

DRUGS (1)
  1. COPAXONE [Suspect]
     Active Substance: GLATIRAMER ACETATE
     Indication: Product used for unknown indication
     Route: 065
     Dates: start: 20240729

REACTIONS (3)
  - Blood pressure increased [Recovered/Resolved]
  - Intracranial pressure increased [Recovered/Resolved]
  - Erythema [Recovered/Resolved]
